FAERS Safety Report 4717087-9 (Version None)
Quarter: 2005Q3

REPORT INFORMATION
  Report Type: 
  Country: None (occurrence: None)
  Receive Date: 20050715
  Receipt Date: 20050331
  Transmission Date: 20060218
  Serious: Yes (Death)
  Sender: FDA-Public Use
  Company Number: 2005FR-00096

PATIENT
  Age: 92 Year
  Sex: Female
  Weight: 40 kg

DRUGS (5)
  1. IBUPROFEN [Suspect]
     Indication: CHEST PAIN
     Dosage: 400 MG, ORAL
     Route: 048
     Dates: start: 20041202, end: 20041209
  2. ACETAMINOPHEN [Suspect]
  3. ACETAMINOPHEN [Concomitant]
  4. LACTULOSE [Concomitant]
  5. SENNA [Concomitant]

REACTIONS (4)
  - BLOOD CREATININE INCREASED [None]
  - CONSTIPATION [None]
  - DEHYDRATION [None]
  - PANCREATITIS [None]
